FAERS Safety Report 14562012 (Version 1)
Quarter: 2018Q1

REPORT INFORMATION
  Report Type: Report from Study
  Country: CA (occurrence: CA)
  Receive Date: 20180222
  Receipt Date: 20180222
  Transmission Date: 20180509
  Serious: Yes (Hospitalization)
  Sender: FDA-Public Use
  Company Number: CA-HLSUS-2018-CA-000012

PATIENT
  Sex: Male

DRUGS (6)
  1. CLOZARIL [Suspect]
     Active Substance: CLOZAPINE
     Dosage: 500 MG ONCE DAILY
     Route: 048
     Dates: start: 19950307
  2. METFORMIN [Concomitant]
     Active Substance: METFORMIN HYDROCHLORIDE
     Dosage: 500 MG 2 TABLETS TWICE DAILY
  3. DILAUDID [Concomitant]
     Active Substance: HYDROMORPHONE HYDROCHLORIDE
  4. ESCITALOPRAM [Concomitant]
     Active Substance: ESCITALOPRAM OXALATE
  5. ROSUVASTATIN. [Concomitant]
     Active Substance: ROSUVASTATIN
     Dosage: 20 MG ONCE DAILY
  6. BUDESONIDE NASAL SPRAY [Concomitant]
     Active Substance: BUDESONIDE

REACTIONS (5)
  - Sleep disorder [Unknown]
  - Atelectasis [Unknown]
  - Tibia fracture [Unknown]
  - Respiratory failure [Recovering/Resolving]
  - Weight increased [Unknown]
